FAERS Safety Report 4386742-5 (Version None)
Quarter: 2004Q2

REPORT INFORMATION
  Report Type: 
  Country: None (occurrence: None)
  Receive Date: 20040629
  Receipt Date: 20040624
  Transmission Date: 20050107
  Serious: Yes (Disabling)
  Sender: FDA-Public Use
  Company Number: US-MERCK-0406USA02319

PATIENT
  Age: 64 Year
  Sex: Male

DRUGS (12)
  1. CLONAZEPAM [Concomitant]
     Route: 065
  2. DOCUSATE SODIUM [Concomitant]
     Route: 065
  3. ARICEPT [Concomitant]
     Route: 065
  4. DONEPEZIL HYDROCHLORIDE [Concomitant]
     Route: 065
  5. FOSINOPRIL SODIUM [Concomitant]
     Route: 065
  6. GARLIC EXTRACT [Concomitant]
     Route: 065
  7. MIRTAZAPINE [Concomitant]
     Route: 065
  8. PROPRANOLOL HYDROCHLORIDE [Concomitant]
     Route: 065
  9. PYRIDOSTIGMINE BROMIDE [Concomitant]
     Route: 065
  10. VIOXX [Concomitant]
     Route: 065
  11. ZOCOR [Suspect]
     Indication: HYPERCHOLESTEROLAEMIA
     Route: 048
     Dates: start: 19890101
  12. VITAMIN E [Concomitant]
     Route: 065

REACTIONS (2)
  - MUSCULAR DYSTROPHY [None]
  - MYASTHENIA GRAVIS [None]
